FAERS Safety Report 6316340-5 (Version None)
Quarter: 2009Q3

REPORT INFORMATION
  Report Type: 
  Country: None (occurrence: None)
  Receive Date: 20090820
  Receipt Date: 20090811
  Transmission Date: 20100115
  Serious: Yes (Hospitalization)
  Sender: FDA-Public Use
  Company Number: A0801640A

PATIENT
  Age: 58 Year
  Sex: Female

DRUGS (21)
  1. PROMACTA [Suspect]
     Dosage: 1TAB PER DAY
     Route: 048
     Dates: start: 20090716, end: 20090810
  2. LASIX [Concomitant]
  3. LISINOPRIL [Concomitant]
  4. INSULIN [Concomitant]
  5. MELATONIN [Concomitant]
  6. MULTI-VITAMIN [Concomitant]
  7. ACTOS [Concomitant]
  8. ROPINIROLE [Concomitant]
  9. LORATADINE [Concomitant]
  10. ULTRAM [Concomitant]
  11. ASPIRIN [Concomitant]
  12. CYMBALTA [Concomitant]
  13. EFFEXOR [Concomitant]
  14. XANAX [Concomitant]
  15. LIPITOR [Concomitant]
  16. CARVEDILOL [Concomitant]
  17. WELLBUTRIN XL [Concomitant]
  18. FOLIC ACID [Concomitant]
  19. HYDRALAZINE HCL [Concomitant]
  20. LORTAB [Concomitant]
  21. ALBUTEROL [Concomitant]

REACTIONS (5)
  - ABDOMINAL DISTENSION [None]
  - CARDIAC PACEMAKER INSERTION [None]
  - DYSPNOEA [None]
  - PNEUMONIA [None]
  - WEIGHT INCREASED [None]
